FAERS Safety Report 8456355-4 (Version None)
Quarter: 2012Q2

REPORT INFORMATION
  Report Type: 
  Country: None (occurrence: None)
  Receive Date: 20120621
  Receipt Date: 20120521
  Transmission Date: 20120825
  Serious: Yes (Disabling)
  Sender: FDA-Public Use
  Company Number: SE-GLAXOSMITHKLINE-B0803480A

PATIENT
  Sex: Female

DRUGS (7)
  1. METOPROLOL TARTRATE [Concomitant]
     Indication: HYPERTONIA
  2. PRAVACHOL [Concomitant]
  3. LAPATINIB [Suspect]
     Indication: BREAST CANCER
     Dosage: 250MG PER DAY
     Dates: start: 20120507, end: 20120514
  4. IRBESARTAN AND HYDROCHLOROTHIAZIDE [Concomitant]
     Indication: HYPERTONIA
  5. LEVOTHYROXINE SODIUM [Concomitant]
     Indication: HYPOTHYROIDISM
  6. ASPIRIN [Concomitant]
  7. CYANOCOBALAMIN [Concomitant]

REACTIONS (11)
  - ABSCESS [None]
  - RASH PUSTULAR [None]
  - PARAESTHESIA [None]
  - EPISTAXIS [None]
  - EAR HAEMORRHAGE [None]
  - DIARRHOEA [None]
  - RASH [None]
  - SKIN HAEMORRHAGE [None]
  - RASH ERYTHEMATOUS [None]
  - SCAR [None]
  - PAPULE [None]
